FAERS Safety Report 11115712 (Version 4)
Quarter: 2020Q3

REPORT INFORMATION
  Report Type: Report from Study
  Country: US (occurrence: US)
  Receive Date: 20150515
  Receipt Date: 20200831
  Transmission Date: 20201102
  Serious: Yes (Hospitalization, Disabling)
  Sender: FDA-Public Use
  Company Number: US-SA-2014SA032285

PATIENT
  Age: 64 Year
  Sex: Female

DRUGS (10)
  1. SYNTHROID [Concomitant]
     Active Substance: LEVOTHYROXINE SODIUM
     Route: 065
  2. LORAZEPAM. [Concomitant]
     Active Substance: LORAZEPAM
     Route: 065
  3. TERIFLUNOMIDE. [Suspect]
     Active Substance: TERIFLUNOMIDE
     Indication: MULTIPLE SCLEROSIS
     Dosage: 14 MG,QD
     Route: 048
     Dates: start: 20140214
  4. ELAVIL [ALLOPURINOL] [Concomitant]
     Active Substance: ALLOPURINOL
     Route: 065
  5. TEGRETOL [Concomitant]
     Active Substance: CARBAMAZEPINE
     Route: 065
  6. CYMBALTA [Concomitant]
     Active Substance: DULOXETINE HYDROCHLORIDE
     Route: 065
  7. TERIFLUNOMIDE. [Suspect]
     Active Substance: TERIFLUNOMIDE
     Dosage: 14 MG,QD
     Route: 048
     Dates: start: 20140307
  8. KEPPRA [Concomitant]
     Active Substance: LEVETIRACETAM
     Route: 065
  9. GABAPENTIN. [Concomitant]
     Active Substance: GABAPENTIN
     Route: 065
  10. DILAUDID [Concomitant]
     Active Substance: HYDROMORPHONE HYDROCHLORIDE
     Route: 065

REACTIONS (13)
  - Chills [Unknown]
  - Pain [Not Recovered/Not Resolved]
  - Hospitalisation [Recovered/Resolved]
  - Trigeminal neuralgia [Not Recovered/Not Resolved]
  - Fatigue [Unknown]
  - Feeling abnormal [Unknown]
  - Peripheral swelling [Unknown]
  - Decreased appetite [Unknown]
  - Malaise [Unknown]
  - Somnolence [Unknown]
  - Weight increased [Unknown]
  - Speech disorder [Unknown]
  - Memory impairment [Unknown]

NARRATIVE: CASE EVENT DATE: 201503
